FAERS Safety Report 6149585-8 (Version None)
Quarter: 2009Q2

REPORT INFORMATION
  Report Type: 
  Country: None (occurrence: None)
  Receive Date: 20090406
  Receipt Date: 20090406
  Transmission Date: 20091009
  Serious: Yes (Other)
  Sender: FDA-Public Use
  Company Number: None

PATIENT
  Age: 74 Year
  Sex: Male
  Weight: 83.9154 kg

DRUGS (1)
  1. CRESTOR [Suspect]
     Indication: BLOOD CHOLESTEROL INCREASED
     Dates: start: 20080701, end: 20080901

REACTIONS (5)
  - ABDOMINAL DISCOMFORT [None]
  - ASTHENIA [None]
  - MALAISE [None]
  - MUSCLE ATROPHY [None]
  - MYALGIA [None]
